FAERS Safety Report 24022779 (Version 1)
Quarter: 2024Q2

REPORT INFORMATION
  Report Type: Spontaneous
  Country: JP (occurrence: JP)
  Receive Date: 20240627
  Receipt Date: 20240627
  Transmission Date: 20240716
  Serious: No
  Sender: FDA-Public Use
  Company Number: JP-ROCHE-3475217

PATIENT
  Age: 59 Year
  Sex: Male

DRUGS (2)
  1. ALECTINIB [Suspect]
     Active Substance: ALECTINIB
     Indication: Salivary gland cancer
     Route: 048
  2. CERITINIB [Concomitant]
     Active Substance: CERITINIB

REACTIONS (6)
  - Jaundice cholestatic [Unknown]
  - Off label use [Unknown]
  - PIK3CA-activated mutation [Unknown]
  - Drug resistance [Unknown]
  - Hepatic function abnormal [Unknown]
  - Disease progression [Unknown]
